FAERS Safety Report 11841573 (Version 1)
Quarter: 2015Q4

REPORT INFORMATION
  Report Type: Spontaneous
  Country: GB (occurrence: GB)
  Receive Date: 20151216
  Receipt Date: 20151216
  Transmission Date: 20160305
  Serious: Yes (Other)
  Sender: FDA-Public Use
  Company Number: GB-JNJFOC-20151210651

PATIENT
  Age: 72 Year
  Sex: Female

DRUGS (1)
  1. TRABECTEDIN [Suspect]
     Active Substance: TRABECTEDIN
     Indication: FEMALE REPRODUCTIVE NEOPLASM
     Dosage: CYCLES 1-3
     Route: 042

REACTIONS (1)
  - Acute myocardial infarction [Unknown]
